FAERS Safety Report 6028207-0 (Version None)
Quarter: 2008Q4

REPORT INFORMATION
  Report Type: 
  Country: None (occurrence: None)
  Receive Date: 20081231
  Receipt Date: 20081231
  Transmission Date: 20090506
  Serious: No
  Sender: FDA-Public Use
  Company Number: None

PATIENT
  Sex: Male

DRUGS (10)
  1. CHANTIX [Suspect]
     Dosage: 1MG TABLET 1 MG QD
     Route: 048
     Dates: start: 20070503, end: 20081230
  2. ALBUTEROL [Concomitant]
  3. AZITHROMYCIN [Concomitant]
  4. NEXIUM [Concomitant]
  5. NIZORAL [Concomitant]
  6. NIZORAL SHAMPOO (KETOCONAZOLE 2% SHAMPOO) [Concomitant]
  7. OMEPRAZOLE [Concomitant]
  8. PEGINTRON READY PEN [Concomitant]
  9. RIBAVIRIN [Concomitant]
  10. VARENICLINE STARTING MONTH PAK [Concomitant]

REACTIONS (3)
  - DRUG INTOLERANCE [None]
  - NAUSEA [None]
  - VOMITING [None]
